FAERS Safety Report 17418751 (Version 3)
Quarter: 2020Q1

REPORT INFORMATION
  Report Type: Report from Study
  Country: US (occurrence: US)
  Receive Date: 20200214
  Receipt Date: 20200323
  Transmission Date: 20200409
  Serious: No
  Sender: FDA-Public Use
  Company Number: NVSC2020US039450

PATIENT
  Age: 55 Year
  Sex: Male

DRUGS (1)
  1. GILENYA [Suspect]
     Active Substance: FINGOLIMOD HYDROCHLORIDE
     Indication: RELAPSING-REMITTING MULTIPLE SCLEROSIS
     Dosage: 0.5 MG, QD
     Route: 048
     Dates: start: 20191031

REACTIONS (6)
  - Weight decreased [Unknown]
  - Fatigue [Unknown]
  - Decreased appetite [Unknown]
  - Vomiting [Unknown]
  - Psoriasis [Unknown]
  - Rash [Unknown]

NARRATIVE: CASE EVENT DATE: 20191031
